FAERS Safety Report 9016549 (Version 2)
Quarter: 2013Q2

REPORT INFORMATION
  Report Type: Spontaneous
  Country: US (occurrence: US)
  Receive Date: 20130117
  Receipt Date: 20130510
  Transmission Date: 20140414
  Serious: No
  Sender: FDA-Public Use
  Company Number: US-009507513-1301USA005401

PATIENT
  Sex: Female

DRUGS (2)
  1. NASONEX [Suspect]
     Dosage: TWO SPRAYS IN EACH NOSTRIL, BID
     Route: 045
     Dates: start: 2001
  2. NASONEX [Suspect]
     Dosage: TWO SPRAYS IN EACH NOSTRIL, QD
     Route: 045

REACTIONS (4)
  - Drug dose omission [Unknown]
  - Inappropriate schedule of drug administration [Unknown]
  - Product container issue [Unknown]
  - No adverse event [Unknown]
